FAERS Safety Report 23666745 (Version 1)
Quarter: 2024Q1

REPORT INFORMATION
  Report Type: Spontaneous
  Country: TR (occurrence: TR)
  Receive Date: 20240325
  Receipt Date: 20240325
  Transmission Date: 20240409
  Serious: Yes (Death, Other)
  Sender: FDA-Public Use
  Company Number: TR-AMGEN-TURSP2024053826

PATIENT

DRUGS (1)
  1. BEVACIZUMAB [Suspect]
     Active Substance: BEVACIZUMAB
     Indication: Squamous cell carcinoma of the cervix
     Dosage: UNK
     Route: 065

REACTIONS (10)
  - Death [Fatal]
  - Squamous cell carcinoma of the cervix [Unknown]
  - Metastases to skin [Unknown]
  - Metastases to soft tissue [Unknown]
  - Metastases to lung [Unknown]
  - Metastases to liver [Unknown]
  - Metastases to bone [Unknown]
  - Metastases to peritoneum [Unknown]
  - Metastases to central nervous system [Unknown]
  - Intestinal metastasis [Unknown]
